FAERS Safety Report 18706211 (Version 7)
Quarter: 2024Q1

REPORT INFORMATION
  Report Type: Spontaneous
  Country: PL (occurrence: PL)
  Receive Date: 20210106
  Receipt Date: 20240328
  Transmission Date: 20240409
  Serious: Yes (Hospitalization, Other)
  Sender: FDA-Public Use
  Company Number: PL-EMA-DD-20210111-FAIZAN_M-120202

PATIENT
  Age: 42 Year
  Sex: Male

DRUGS (19)
  1. ACETAMINOPHEN [Suspect]
     Active Substance: ACETAMINOPHEN
     Indication: Analgesic therapy
     Dosage: UNK
     Route: 065
  2. IBUPROFEN [Suspect]
     Active Substance: IBUPROFEN
     Indication: Analgesic therapy
     Route: 065
  3. FENTANYL [Suspect]
     Active Substance: FENTANYL\FENTANYL CITRATE
     Indication: Arthralgia
     Route: 045
  4. FENTANYL [Suspect]
     Active Substance: FENTANYL\FENTANYL CITRATE
     Indication: Arthralgia
     Dosage: ADM MORE THAN 4 TIMES PER DAY DUE TO THE FREQUENT EXCEEDING OF FOUR ADMINISTRATIONS A DAY
     Route: 002
  5. OXYCODONE [Suspect]
     Active Substance: OXYCODONE\OXYCODONE HYDROCHLORIDE
     Indication: Arthralgia
     Dosage: TABLET, DELAYED RELEASE (320 MG IN 1 DAY)
     Route: 048
  6. OXYCODONE [Suspect]
     Active Substance: OXYCODONE\OXYCODONE HYDROCHLORIDE
     Dosage: 240 MILLIGRAM DAILY; CONTROLLED-RELEASE TABLETS
     Route: 048
  7. OXYCODONE [Suspect]
     Active Substance: OXYCODONE\OXYCODONE HYDROCHLORIDE
     Dosage: BID
     Route: 065
  8. OXYCODONE [Suspect]
     Active Substance: OXYCODONE\OXYCODONE HYDROCHLORIDE
     Dosage: 100 MILLIGRAM, TID
     Route: 065
  9. GABAPENTIN [Suspect]
     Active Substance: GABAPENTIN
     Indication: Arthralgia
     Route: 065
  10. GABAPENTIN [Suspect]
     Active Substance: GABAPENTIN
     Dosage: GABAPENTIN AT A DOSE OF 300 MG EVERY 8 HOURS
     Route: 065
  11. MORPHINE [Suspect]
     Active Substance: MORPHINE
     Indication: Pain
     Route: 065
  12. MORPHINE [Suspect]
     Active Substance: MORPHINE
     Route: 065
  13. PREGABALIN [Suspect]
     Active Substance: PREGABALIN
     Indication: Pain
     Route: 065
  14. PREGABALIN [Suspect]
     Active Substance: PREGABALIN
     Route: 065
  15. PREGABALIN [Suspect]
     Active Substance: PREGABALIN
     Route: 065
  16. TRAMADOL [Suspect]
     Active Substance: TRAMADOL\TRAMADOL HYDROCHLORIDE
     Indication: Pain
     Route: 065
  17. METAMIZOLE [Suspect]
     Active Substance: METAMIZOLE
     Indication: Pain
     Route: 065
  18. KETOPROFEN [Suspect]
     Active Substance: KETOPROFEN
     Indication: Pain
     Route: 065
  19. CLADRIBINE [Concomitant]
     Active Substance: CLADRIBINE
     Indication: Systemic mastocytosis
     Route: 065

REACTIONS (10)
  - Drug dependence [Recovered/Resolved]
  - Rhinitis allergic [Recovered/Resolved]
  - Constipation [Unknown]
  - Anaphylactic shock [Recovered/Resolved]
  - Hypersensitivity [Recovered/Resolved]
  - Therapeutic product effect incomplete [Unknown]
  - Toothache [Not Recovered/Not Resolved]
  - Gingival pain [Not Recovered/Not Resolved]
  - Drug intolerance [Unknown]
  - Therapeutic response decreased [Unknown]
